FAERS Safety Report 6388209-1 (Version None)
Quarter: 2009Q4

REPORT INFORMATION
  Report Type: 
  Country: None (occurrence: None)
  Receive Date: 20091005
  Receipt Date: 20090929
  Transmission Date: 20100525
  Serious: No
  Sender: FDA-Public Use
  Company Number: US-B.I. PHARMACEUTICALS,INC./RIDGEFIELD-2009-BP-09992BP

PATIENT
  Sex: Female
  Weight: 90.9 kg

DRUGS (5)
  1. CATAPRES-TTS-1 [Suspect]
     Indication: HYPERTENSION
     Dosage: 0.1 MG
     Route: 061
     Dates: start: 20081101
  2. METOPROLOL [Concomitant]
     Dosage: 100 MG
  3. HYDROCHLOROTHIAZIDE [Concomitant]
     Dosage: 12.5 MG
  4. ATACAND [Concomitant]
     Dosage: 32 MG
  5. OCTREOTIDE (SANDOSTATIN) LAR 4 [Concomitant]

REACTIONS (6)
  - APPLICATION SITE DISCHARGE [None]
  - APPLICATION SITE PAPULES [None]
  - APPLICATION SITE PRURITUS [None]
  - APPLICATION SITE PUSTULES [None]
  - APPLICATION SITE RASH [None]
  - APPLICATION SITE SWELLING [None]
